FAERS Safety Report 24783083 (Version 1)
Quarter: 2024Q4

REPORT INFORMATION
  Report Type: Spontaneous
  Country: IT (occurrence: IT)
  Receive Date: 20241227
  Receipt Date: 20241227
  Transmission Date: 20250114
  Serious: Yes (Hospitalization)
  Sender: MYLAN
  Company Number: None

PATIENT
  Age: 70 Year
  Sex: Male

DRUGS (6)
  1. ZOLOFT [Interacting]
     Active Substance: SERTRALINE HYDROCHLORIDE
     Indication: Product used for unknown indication
     Dosage: UNK
     Route: 048
  2. XARELTO [Interacting]
     Active Substance: RIVAROXABAN
     Indication: Product used for unknown indication
     Dosage: 20 MILLIGRAM (DRUG SUSPENDED FOR DAYS 07 AND 08 OCT 2024)
     Route: 048
  3. BISOPROLOL FUMARATE [Concomitant]
     Active Substance: BISOPROLOL FUMARATE
     Dosage: UNK
     Route: 048
  4. Tavor [Concomitant]
     Dosage: UNK
     Route: 048
  5. LOSARTAN POTASSICO [Concomitant]
     Dosage: UNK
     Route: 048
  6. AMLODIPINE [Concomitant]
     Active Substance: AMLODIPINE BESYLATE
     Dosage: UNK
     Route: 048

REACTIONS (2)
  - Rectal haemorrhage [Recovering/Resolving]
  - Drug interaction [Unknown]

NARRATIVE: CASE EVENT DATE: 20241006
